FAERS Safety Report 7248128-5 (Version None)
Quarter: 2011Q1

REPORT INFORMATION
  Report Type: 
  Country: None (occurrence: None)
  Receive Date: 20110127
  Receipt Date: 20110119
  Transmission Date: 20110831
  Serious: Yes (Other)
  Sender: FDA-Public Use
  Company Number: ES-JNJFOC-20100808529

PATIENT
  Sex: Female

DRUGS (2)
  1. REMICADE [Suspect]
     Indication: PSORIASIS
     Route: 042
  2. METHOTREXATE [Concomitant]
     Indication: PSORIASIS
     Dosage: INITIATED WK 54 OF INFLIXIMAB TREATMENT, DISCONTINUED DUE TO LACK OF EFFICACY/DRUG INEFFECTIVENESS

REACTIONS (1)
  - BONE LESION [None]
